FAERS Safety Report 16500468 (Version 3)
Quarter: 2019Q3

REPORT INFORMATION
  Report Type: Report from Study
  Country: CO (occurrence: CO)
  Receive Date: 20190701
  Receipt Date: 20190723
  Transmission Date: 20191004
  Serious: Yes (Death, Other)
  Sender: FDA-Public Use
  Company Number: CO-JNJFOC-20190625902

PATIENT
  Age: 67 Year
  Sex: Male
  Weight: 49 kg

DRUGS (1)
  1. IMBRUVICA [Suspect]
     Active Substance: IBRUTINIB
     Indication: MANTLE CELL LYMPHOMA
     Route: 048
     Dates: start: 20190608, end: 20190617

REACTIONS (2)
  - Haematochezia [Fatal]
  - Metastases to central nervous system [Fatal]
